FAERS Safety Report 4537254-7 (Version None)
Quarter: 2004Q4

REPORT INFORMATION
  Report Type: 
  Country: None (occurrence: None)
  Receive Date: 20041223
  Receipt Date: 20041214
  Transmission Date: 20050328
  Serious: Yes (Hospitalization)
  Sender: FDA-Public Use
  Company Number: PHRM2004FR03676

PATIENT
  Age: 70 Year
  Sex: Female

DRUGS (6)
  1. SINTROM [Suspect]
     Route: 048
  2. ESIDRIX [Suspect]
     Dosage: 12.5 MG/DAY
     Route: 048
  3. ALDACTONE [Suspect]
     Dosage: 37.5 MG/DAY
     Route: 048
  4. BURINEX [Suspect]
     Dosage: 12.5 MG/DAY
     Route: 048
  5. ATARAX [Concomitant]
     Dosage: 1 DF, PRN
     Route: 048
  6. DIFFU K [Concomitant]
     Route: 048

REACTIONS (12)
  - ASTHENIA [None]
  - BLOOD CREATININE INCREASED [None]
  - BLOOD UREA INCREASED [None]
  - DEHYDRATION [None]
  - DIARRHOEA [None]
  - HYPOCHLORAEMIA [None]
  - HYPOKALAEMIA [None]
  - HYPONATRAEMIA [None]
  - INTERNATIONAL NORMALISED RATIO INCREASED [None]
  - NAUSEA [None]
  - PROTHROMBIN TIME PROLONGED [None]
  - SOMNOLENCE [None]
